FAERS Safety Report 24985713 (Version 2)
Quarter: 2025Q3

REPORT INFORMATION
  Report Type: Spontaneous
  Country: CN (occurrence: CN)
  Receive Date: 20250219
  Receipt Date: 20250816
  Transmission Date: 20251020
  Serious: No
  Sender: ALEXION PHARMACEUTICALS
  Company Number: CN-AstraZeneca-2018SE34491

PATIENT
  Age: 57 Year
  Sex: Male

DRUGS (1)
  1. NEXIUM [Suspect]
     Active Substance: ESOMEPRAZOLE MAGNESIUM
     Indication: Abdominal discomfort

REACTIONS (3)
  - Tinnitus [Recovering/Resolving]
  - Off label use [Recovered/Resolved]
  - Product use in unapproved indication [Recovered/Resolved]
